FAERS Safety Report 12007887 (Version 4)
Quarter: 2016Q2

REPORT INFORMATION
  Report Type: Spontaneous
  Country: US (occurrence: US)
  Receive Date: 20160205
  Receipt Date: 20160401
  Transmission Date: 20160815
  Serious: No
  Sender: FDA-Public Use
  Company Number: PHEH2016US002651

PATIENT
  Age: 42 Year
  Sex: Female
  Weight: 64.25 kg

DRUGS (1)
  1. ESTRADIOL. [Suspect]
     Active Substance: ESTRADIOL
     Indication: PRODUCT USED FOR UNKNOWN INDICATION
     Dosage: 1 MG, QD (TWICE WEEK PATCH)
     Route: 062
     Dates: start: 201510

REACTIONS (11)
  - Pruritus [Unknown]
  - Hot flush [Recovering/Resolving]
  - Poor quality sleep [Recovering/Resolving]
  - Fatigue [Unknown]
  - Eye disorder [Unknown]
  - Rash erythematous [Unknown]
  - Drug ineffective [Unknown]
  - Menopausal symptoms [Unknown]
  - Dizziness [Unknown]
  - Sleep disorder [Unknown]
  - Balance disorder [Recovered/Resolved]

NARRATIVE: CASE EVENT DATE: 201510
